FAERS Safety Report 5866097-7 (Version None)
Quarter: 2008Q3

REPORT INFORMATION
  Report Type: 
  Country: None (occurrence: None)
  Receive Date: 20080829
  Receipt Date: 20080820
  Transmission Date: 20090109
  Serious: Yes (Other)
  Sender: FDA-Public Use
  Company Number: AT-PFIZER INC-2008066027

PATIENT
  Sex: Male
  Weight: 83 kg

DRUGS (12)
  1. LYRICA [Suspect]
     Dosage: DAILY DOSE:125MG
     Route: 048
  2. MOXONIDINE [Concomitant]
  3. LANSOPRAZOLE [Concomitant]
  4. COSOPT [Concomitant]
  5. SYMBICORT [Concomitant]
  6. AMARYL [Concomitant]
  7. NORVASC [Concomitant]
  8. SORTIS [Concomitant]
  9. RENITEC [Concomitant]
  10. BETASERC [Concomitant]
  11. ISOPHANE INSULIN [Concomitant]
  12. METFORMIN HCL [Concomitant]
     Route: 048

REACTIONS (2)
  - DRUG EFFECT DECREASED [None]
  - PHANTOM PAIN [None]
